FAERS Safety Report 21672174 (Version 1)
Quarter: 2022Q4

REPORT INFORMATION
  Report Type: Spontaneous
  Country: DE (occurrence: DE)
  Receive Date: 20221202
  Receipt Date: 20221202
  Transmission Date: 20230113
  Serious: Yes (Hospitalization)
  Sender: FDA-Public Use
  Company Number: None

PATIENT
  Age: 64 Year
  Sex: Male

DRUGS (9)
  1. CLOPIDOGREL [Suspect]
     Active Substance: CLOPIDOGREL BISULFATE
     Indication: Product used for unknown indication
     Dosage: 75 MG, PAUSED SINCE JUNE THIRTIETH
  2. ASPIRIN [Suspect]
     Active Substance: ASPIRIN
     Indication: Product used for unknown indication
     Dosage: 100 MG, CURRENTLY PAUSED
  3. NITRENDIPINE [Concomitant]
     Active Substance: NITRENDIPINE
     Dosage: BEI BEDARF
  4. POLYETHYLENE GLYCOLS [Concomitant]
     Active Substance: POLYETHYLENE GLYCOLS
     Dosage: 1-0-0-0
  5. AMLODIPINE [Concomitant]
     Active Substance: AMLODIPINE BESYLATE
     Dosage: 5 MG, 0-0-1-0
  6. RAMIPRIL [Concomitant]
     Active Substance: RAMIPRIL
     Dosage: 5 MG, 1-0-0-0
  7. PROPRANOLOL [Concomitant]
     Active Substance: PROPRANOLOL HYDROCHLORIDE
     Dosage: 40 MG, 1-0-0-0
  8. PIRITRAMIDE [Concomitant]
     Active Substance: PIRITRAMIDE
     Dosage: 3.75 MG, AS REQUIRED
  9. TROSPIUM [Concomitant]
     Active Substance: TROSPIUM
     Dosage: BEI BEDARF

REACTIONS (4)
  - Cerebral infarction [Unknown]
  - Hypertension [Unknown]
  - Cerebral haemorrhage [Unknown]
  - Haemorrhage [Unknown]
